FAERS Safety Report 8761597 (Version 3)
Quarter: 2012Q4

REPORT INFORMATION
  Report Type: 
  Country: JP (occurrence: JP)
  Receive Date: 20120828
  Receipt Date: 20121206
  Transmission Date: 20130627
  Serious: Yes (Other)
  Sender: FDA-Public Use
  Company Number: JP-BAXTER-2012BAX015452

PATIENT
  Age: 6 Year
  Sex: Female

DRUGS (5)
  1. KIOVIG HUMAN NORMAL IMMUNOGLOBULIN (IVIG) 10% [Suspect]
     Indication: IMMUNE-MEDIATED THROMBOCYTOPENIC PURPURA
     Dosage: 1 G/KG
  2. KIOVIG HUMAN NORMAL IMMUNOGLOBULIN (IVIG) 10% [Suspect]
     Indication: CHILDHOOD DERMATOMYOSITIS
  3. METHYLPREDNISOLONE [Suspect]
     Indication: IMMUNE-MEDIATED THROMBOCYTOPENIC PURPURA
     Route: 042
  4. PREDNISOLONE [Suspect]
     Indication: IMMUNE-MEDIATED THROMBOCYTOPENIC PURPURA
  5. PREDNISOLONE [Suspect]

REACTIONS (1)
  - Drug ineffective [Recovered/Resolved]
